FAERS Safety Report 8875692 (Version 1)
Quarter: 2012Q4

REPORT INFORMATION
  Report Type: 
  Country: US (occurrence: US)
  Receive Date: 20121030
  Receipt Date: 20121030
  Transmission Date: 20130627
  Serious: Yes (Other)
  Sender: FDA-Public Use
  Company Number: US-ROCHE-791203

PATIENT
  Sex: Female
  Weight: 67.19 kg

DRUGS (1)
  1. ACCUTANE [Suspect]
     Indication: ACNE
     Route: 065
     Dates: start: 1999, end: 2001

REACTIONS (8)
  - Inflammatory bowel disease [Unknown]
  - Crohn^s disease [Unknown]
  - Emotional distress [Unknown]
  - Irritable bowel syndrome [Unknown]
  - Large intestine polyp [Unknown]
  - Suicidal ideation [Unknown]
  - Depression [Unknown]
  - Osteopenia [Unknown]
